FAERS Safety Report 10479760 (Version 2)
Quarter: 2014Q3

REPORT INFORMATION
  Report Type: Spontaneous
  Country: DE (occurrence: DE)
  Receive Date: 20140927
  Receipt Date: 20140927
  Transmission Date: 20150326
  Serious: Yes (Life-Threatening)
  Sender: FDA-Public Use
  Company Number: GXKR2014DE003435

PATIENT
  Age: 73 Year
  Sex: Male
  Weight: 88 kg

DRUGS (3)
  1. AMOXICILLIN. [Suspect]
     Active Substance: AMOXICILLIN
     Indication: TRANSURETHRAL PROSTATECTOMY
     Dosage: USUAL DOSE
     Route: 041
  2. CEFPODOXIME [Suspect]
     Active Substance: CEFPODOXIME
     Indication: TRANSURETHRAL PROSTATECTOMY
     Dosage: UNK
     Route: 048
  3. AMOCLAV [Suspect]
     Active Substance: AMOXICILLIN\CLAVULANATE POTASSIUM
     Indication: OTITIS MEDIA
     Dosage: 1 DF, BID
     Route: 048

REACTIONS (5)
  - Condition aggravated [Recovering/Resolving]
  - Glaucoma [Recovering/Resolving]
  - Intraocular pressure increased [Recovering/Resolving]
  - Neuropathy peripheral [Recovering/Resolving]
  - Visual acuity reduced [Recovering/Resolving]
